FAERS Safety Report 21056806 (Version 1)
Quarter: 2022Q3

REPORT INFORMATION
  Report Type: Spontaneous
  Country: US (occurrence: None)
  Receive Date: 20220708
  Receipt Date: 20220708
  Transmission Date: 20221026
  Serious: Yes (Other)
  Sender: FDA-Public Use
  Company Number: US-Hikma Pharmaceuticals USA Inc.-US-H14001-22-00834

PATIENT
  Age: 65 Year
  Sex: Female

DRUGS (1)
  1. BUPRENORPHINE AND NALOXONE [Suspect]
     Active Substance: BUPRENORPHINE HYDROCHLORIDE\NALOXONE HYDROCHLORIDE
     Indication: Product used for unknown indication
     Dosage: ONE TABLET, 8/2 MG
     Route: 048

REACTIONS (4)
  - Headache [Not Recovered/Not Resolved]
  - Impaired quality of life [Unknown]
  - Off label use [Unknown]
  - Product tampering [Unknown]

NARRATIVE: CASE EVENT DATE: 20220316
